FAERS Safety Report 10132614 (Version 1)
Quarter: 2014Q2

REPORT INFORMATION
  Report Type: Spontaneous
  Country: US (occurrence: US)
  Receive Date: 20140428
  Receipt Date: 20140428
  Transmission Date: 20141212
  Serious: No
  Sender: FDA-Public Use
  Company Number: US-MALLINCKRODT-T201303425

PATIENT
  Sex: Female
  Weight: 92.52 kg

DRUGS (10)
  1. HYDROCODONE/ACETAMINOPHEN [Suspect]
     Indication: PAIN
     Dosage: 10/325MG
     Route: 048
     Dates: end: 201305
  2. HUMIRA [Suspect]
     Indication: RHEUMATOID ARTHRITIS
     Dosage: 40 MG, 1 IN 2 WK, INJECTION
     Dates: start: 201301, end: 201304
  3. ARAVA [Suspect]
     Indication: PRODUCT USED FOR UNKNOWN INDICATION
     Dosage: UNK
     Dates: start: 2000, end: 201304
  4. LIPITOR [Suspect]
     Indication: BLOOD CHOLESTEROL INCREASED
  5. ATENOLOL [Suspect]
     Indication: HYPERTENSION
     Dosage: 50 MG, 2 IN 1 D
     Dates: end: 201305
  6. ATENOLOL [Suspect]
     Indication: HYPERTENSION
     Dosage: 50 MG, 1 IN 1 D
     Dates: start: 201305
  7. ACIPHEX [Concomitant]
     Indication: GASTROOESOPHAGEAL REFLUX DISEASE
  8. LISINOPRIL [Concomitant]
     Indication: HYPERTENSION
  9. ZOLOFT [Concomitant]
     Indication: ANXIETY
  10. ASA [Concomitant]
     Indication: PROPHYLAXIS

REACTIONS (4)
  - Liver function test abnormal [Unknown]
  - Spinal osteoarthritis [Unknown]
  - Back pain [Unknown]
  - Arthralgia [Unknown]
